FAERS Safety Report 20926018 (Version 1)
Quarter: 2022Q2

REPORT INFORMATION
  Report Type: Other
  Country: US (occurrence: None)
  Receive Date: 20220607
  Receipt Date: 20220607
  Transmission Date: 20220721
  Serious: Yes (Death, Hospitalization, Other)
  Sender: FDA-Public Use
  Company Number: US-Nivagen-000015

PATIENT
  Age: 33 Year
  Sex: Male

DRUGS (7)
  1. SUCCINYLCHOLINE [Suspect]
     Active Substance: SUCCINYLCHOLINE
     Indication: Sedation
     Dosage: 100 MG
  2. METHAMPHETAMINE [Suspect]
     Active Substance: METHAMPHETAMINE
     Indication: Product used for unknown indication
  3. MIDAZOLAM [Concomitant]
     Active Substance: MIDAZOLAM
     Indication: Sedation
  4. NALOXONE [Concomitant]
     Active Substance: NALOXONE
     Indication: Product used for unknown indication
     Dosage: 2 MG
     Route: 042
  5. DEXTROSE [Concomitant]
     Active Substance: DEXTROSE
     Indication: Product used for unknown indication
     Dosage: 7.1 MMOL/L (129 MG/DL)
  6. PROPOFOL [Concomitant]
     Active Substance: PROPOFOL
     Indication: Sedation
     Dosage: 100 MG (INTUBATED)
  7. MIDAZOLAM [Concomitant]
     Active Substance: MIDAZOLAM
     Indication: Seizure
     Dosage: 10 MG
     Route: 042

REACTIONS (9)
  - Multiple organ dysfunction syndrome [Fatal]
  - Hyperthermia malignant [Unknown]
  - Hypotension [Unknown]
  - Hypoglycaemia [Unknown]
  - Hyperkalaemia [Unknown]
  - Rhabdomyolysis [Unknown]
  - Acute kidney injury [Unknown]
  - Liver injury [Unknown]
  - Compartment syndrome [Unknown]
